FAERS Safety Report 9370251 (Version 3)
Quarter: 2013Q3

REPORT INFORMATION
  Report Type: Report from Study
  Country: CA (occurrence: CA)
  Receive Date: 20130626
  Receipt Date: 20130724
  Transmission Date: 20140515
  Serious: Yes (Hospitalization)
  Sender: FDA-Public Use
  Company Number: CA-JNJFOC-20130614386

PATIENT
  Age: 42 Year
  Sex: Female
  Weight: 63.9 kg

DRUGS (9)
  1. REMICADE [Suspect]
     Indication: CROHN^S DISEASE
     Route: 042
     Dates: start: 20130626
  2. REMICADE [Suspect]
     Indication: CROHN^S DISEASE
     Route: 042
     Dates: start: 20121122
  3. REMICADE [Suspect]
     Indication: CROHN^S DISEASE
     Route: 042
     Dates: start: 201212
  4. VENLAFAXINE [Concomitant]
     Route: 065
  5. TEMAZEPAM [Concomitant]
     Route: 065
  6. GABAPENTIN [Concomitant]
     Route: 065
  7. FUROSEMIDE [Concomitant]
     Route: 065
  8. SLOW K [Concomitant]
     Route: 065
  9. RABEPRAZOLE [Concomitant]
     Route: 065

REACTIONS (2)
  - Ear operation [Recovering/Resolving]
  - Arthralgia [Unknown]
